FAERS Safety Report 5839317-2 (Version None)
Quarter: 2008Q3

REPORT INFORMATION
  Report Type: 
  Country: None (occurrence: None)
  Receive Date: 20080808
  Receipt Date: 20080729
  Transmission Date: 20090109
  Serious: Yes (Other)
  Sender: FDA-Public Use
  Company Number: BR-PFIZER INC-2008064303

PATIENT
  Age: 5 Year
  Sex: Male

DRUGS (1)
  1. TOLTERODINE TARTRATE [Suspect]
     Route: 048

REACTIONS (7)
  - ABDOMINAL PAIN [None]
  - AGITATION [None]
  - CONFUSIONAL STATE [None]
  - EYELID OEDEMA [None]
  - OCULAR HYPERAEMIA [None]
  - OEDEMA MOUTH [None]
  - VOMITING [None]
